FAERS Safety Report 9476018 (Version 2)
Quarter: 2013Q3

REPORT INFORMATION
  Report Type: Spontaneous
  Country: BR (occurrence: BR)
  Receive Date: 20130826
  Receipt Date: 20130826
  Transmission Date: 20140515
  Serious: Yes (Other)
  Sender: FDA-Public Use
  Company Number: BR-PFIZER INC-2013234425

PATIENT
  Age: 71 Year
  Sex: Female

DRUGS (3)
  1. XALATAN [Suspect]
     Indication: GLAUCOMA
     Dosage: 1 DROP EACH EYE, 2X/DAY
     Route: 047
     Dates: start: 2003
  2. XALATAN [Suspect]
     Dosage: 3 UG (1 DROP IN EACH EYE), 2X/DAY
     Dates: start: 2008
  3. JANUVIA [Concomitant]
     Indication: INTRAOCULAR PRESSURE TEST ABNORMAL
     Dosage: 1 DF DAILY
     Route: 048
     Dates: start: 2006

REACTIONS (3)
  - Off label use [Not Recovered/Not Resolved]
  - Glaucoma [Unknown]
  - Visual acuity reduced [Not Recovered/Not Resolved]
